FAERS Safety Report 5155664-4 (Version None)
Quarter: 2006Q4

REPORT INFORMATION
  Report Type: 
  Country: None (occurrence: None)
  Receive Date: 20061114
  Receipt Date: 20061101
  Transmission Date: 20070319
  Serious: Yes (Hospitalization)
  Sender: FDA-Public Use
  Company Number: 2006AL003394

PATIENT
  Age: 6 Month
  Sex: Female
  Weight: 5.5 kg

DRUGS (4)
  1. ACYCLOVIR [Suspect]
     Indication: ANTIVIRAL PROPHYLAXIS
     Dosage: 250  MG/M 2; QD; PO
     Route: 048
  2. ACYCLOVIR [Suspect]
     Indication: HERPES VIRUS INFECTION
     Dosage: 250  MG/M 2; QD; PO
     Route: 048
  3. CYCLOSPORINE [Concomitant]
  4. FLUCONAZOLE [Concomitant]

REACTIONS (14)
  - AGITATION [None]
  - ANTIVIRAL DRUG LEVEL ABOVE THERAPEUTIC [None]
  - ANURIA [None]
  - ASCITES [None]
  - BLOOD BILIRUBIN INCREASED [None]
  - CHOREOATHETOSIS [None]
  - COMA [None]
  - ENCEPHALOPATHY [None]
  - FLUID RETENTION [None]
  - HAEMODIALYSIS [None]
  - HEPATIC ARTERY THROMBOSIS [None]
  - HEPATOMEGALY [None]
  - NEUROTOXICITY [None]
  - PROTHROMBIN TIME SHORTENED [None]
